FAERS Safety Report 18332675 (Version 1)
Quarter: 2020Q3

REPORT INFORMATION
  Report Type: Spontaneous
  Country: GB (occurrence: GB)
  Receive Date: 20200930
  Receipt Date: 20200930
  Transmission Date: 20201103
  Serious: Yes (Death)
  Sender: FDA-Public Use
  Company Number: GB-SEATTLE GENETICS-2020SGN04376

PATIENT

DRUGS (2)
  1. CYCLOPHOSPHAMIDE W/FLUDARABINE [Concomitant]
     Active Substance: CYCLOPHOSPHAMIDE\FLUDARABINE
     Dosage: UNK
     Dates: start: 20140513
  2. ADCETRIS [Suspect]
     Active Substance: BRENTUXIMAB VEDOTIN
     Indication: HODGKIN^S DISEASE
     Dosage: UNK
     Route: 065
     Dates: start: 201311

REACTIONS (1)
  - Death [Fatal]

NARRATIVE: CASE EVENT DATE: 20161008
